FAERS Safety Report 8909588 (Version 1)
Quarter: 2012Q4

REPORT INFORMATION
  Report Type: Spontaneous
  Country: US (occurrence: None)
  Receive Date: 20121107
  Receipt Date: 20121107
  Transmission Date: 20130627
  Serious: Yes (Hospitalization)
  Sender: FDA-Public Use
  Company Number: AUR-APL-2012-04684

PATIENT
  Age: 73 Year
  Sex: Female
  Weight: 81.63 kg

DRUGS (5)
  1. VENLAFAXINE [Suspect]
     Indication: DEPRESSION
     Dosage: (150 mg, 1 D), Unknown
     Dates: start: 2011, end: 2012
  2. MELOXICAM [Suspect]
     Indication: ARTHRITIS
     Dosage: alternate day
  3. EFFEXOR XR [Suspect]
     Indication: DEPRESSION
  4. MOBIC [Suspect]
     Indication: ARTHRITIS
     Dosage: alternate day
  5. TRAMADOL [Concomitant]

REACTIONS (5)
  - Therapeutic response unexpected [None]
  - Knee operation [None]
  - Drug ineffective [None]
  - Abdominal discomfort [None]
  - Depression [None]
